FAERS Safety Report 12616509 (Version 1)
Quarter: 2016Q3

REPORT INFORMATION
  Report Type: Report from Study
  Country: BR (occurrence: BR)
  Receive Date: 20160802
  Receipt Date: 20160802
  Transmission Date: 20161109
  Serious: Yes (Other)
  Sender: FDA-Public Use
  Company Number: PHHY2016BR104628

PATIENT
  Age: 51 Year
  Sex: Female
  Weight: 57 kg

DRUGS (1)
  1. FORASEQ [Suspect]
     Active Substance: BUDESONIDE\FORMOTEROL FUMARATE
     Indication: ASTHMA
     Dosage: 1 DF (400 UG), BID
     Route: 055
     Dates: start: 2013

REACTIONS (11)
  - Abdominal discomfort [Unknown]
  - Tendon disorder [Unknown]
  - Visual impairment [Unknown]
  - Asthma [Unknown]
  - Neck pain [Unknown]
  - Pain in extremity [Unknown]
  - Fall [Unknown]
  - Injury [Unknown]
  - General physical health deterioration [Unknown]
  - Malaise [Unknown]
  - Dysgeusia [Unknown]
